FAERS Safety Report 25984719 (Version 1)
Quarter: 2025Q4

REPORT INFORMATION
  Report Type: Spontaneous
  Country: US (occurrence: US)
  Receive Date: 20251031
  Receipt Date: 20251031
  Transmission Date: 20260117
  Serious: Yes (Hospitalization, Other)
  Sender: PFIZER
  Company Number: US-PFIZER INC-202500213585

PATIENT
  Age: 50 Year
  Sex: Male
  Weight: 97.52 kg

DRUGS (2)
  1. PROTONIX [Suspect]
     Active Substance: PANTOPRAZOLE SODIUM
     Indication: Myocardial infarction
     Dosage: 40 MG, 1X/DAY
     Dates: start: 202006
  2. TOZINAMERAN [Concomitant]
     Active Substance: TOZINAMERAN
     Indication: COVID-19 immunisation
     Dosage: DOSE 2, SINGLE
     Dates: start: 2021, end: 2021

REACTIONS (11)
  - Blood iron decreased [Unknown]
  - Serum ferritin decreased [Unknown]
  - Loss of consciousness [Unknown]
  - Anaemia [Unknown]
  - Red blood cell count abnormal [Unknown]
  - Dyspepsia [Unknown]
  - Gastrointestinal disorder [Unknown]
  - Vitamin B12 decreased [Unknown]
  - Off label use [Unknown]
  - Off label use [Unknown]
  - Intentional product misuse [Unknown]

NARRATIVE: CASE EVENT DATE: 20200101
